FAERS Safety Report 21765251 (Version 1)
Quarter: 2022Q4

REPORT INFORMATION
  Report Type: Other
  Country: CN (occurrence: None)
  Receive Date: 20221222
  Receipt Date: 20221222
  Transmission Date: 20230113
  Serious: Yes (Other)
  Sender: FDA-Public Use
  Company Number: CN-ROCHE-3248113

PATIENT
  Age: 51 Year
  Sex: Female

DRUGS (2)
  1. RITUXIMAB [Suspect]
     Active Substance: RITUXIMAB
     Indication: IgA nephropathy
     Dosage: ADDED TO 500 ML OF NORMAL SALINE INTRAVENOUSLY DRIP FOR MORE THAN 4 HOURS
     Route: 041
  2. METHYLPREDNISOLONE [Concomitant]
     Active Substance: METHYLPREDNISOLONE

REACTIONS (3)
  - Cholecystitis infective [Recovered/Resolved]
  - Sepsis [Recovered/Resolved]
  - Off label use [Unknown]
